FAERS Safety Report 10753440 (Version 2)
Quarter: 2015Q1

REPORT INFORMATION
  Report Type: Spontaneous
  Country: US (occurrence: None)
  Receive Date: 20150129
  Receipt Date: 20150306
  Transmission Date: 20150721
  Serious: Yes (Death)
  Sender: FDA-Public Use
  Company Number: 1713747-2015-99926

PATIENT
  Age: 39 Year
  Sex: Male

DRUGS (1)
  1. STAYSAFE DEXTROSE [Suspect]
     Active Substance: DEXTROSE
     Indication: PERITONEAL DIALYSIS
     Route: 033

REACTIONS (1)
  - Fluid imbalance [None]

NARRATIVE: CASE EVENT DATE: 20141222
